FAERS Safety Report 12903267 (Version 1)
Quarter: 2016Q4

REPORT INFORMATION
  Report Type: Spontaneous
  Country: GB (occurrence: GB)
  Receive Date: 20161102
  Receipt Date: 20161102
  Transmission Date: 20170207
  Serious: Yes (Hospitalization, Disabling)
  Sender: FDA-Public Use
  Company Number: GB-WEST-WARD PHARMACEUTICALS CORP.-GB-H14001-16-02329

PATIENT
  Age: 46 Year
  Sex: Male

DRUGS (3)
  1. BACILLUS TETANUS [Suspect]
     Active Substance: TETANUS TOXOIDS
     Indication: ANIMAL BITE
     Route: 030
     Dates: start: 20160601, end: 20160601
  2. CO-AMOXICLAV [Suspect]
     Active Substance: AMOXICILLIN\CLAVULANIC ACID
     Indication: ANIMAL BITE
     Route: 048
     Dates: start: 20160602, end: 20160603
  3. FLUCLOXACILLIN [Suspect]
     Active Substance: FLUCLOXACILLIN
     Indication: ANIMAL BITE
     Route: 048
     Dates: start: 20160601, end: 20160602

REACTIONS (3)
  - Balance disorder [Not Recovered/Not Resolved]
  - Sudden hearing loss [Not Recovered/Not Resolved]
  - Tinnitus [Not Recovered/Not Resolved]

NARRATIVE: CASE EVENT DATE: 20160602
